FAERS Safety Report 10450243 (Version 1)
Quarter: 2014Q3

REPORT INFORMATION
  Report Type: Spontaneous
  Country: FR (occurrence: FR)
  Receive Date: 20140912
  Receipt Date: 20140912
  Transmission Date: 20150326
  Serious: Yes (Hospitalization)
  Sender: FDA-Public Use
  Company Number: FR-ASTRAZENECA-2014SE67000

PATIENT
  Age: 27 Year
  Sex: Male

DRUGS (5)
  1. XEROQUEL [Suspect]
     Active Substance: QUETIAPINE FUMARATE
     Indication: SCHIZOPHRENIA
     Route: 048
     Dates: start: 2012
  2. BEER [Concomitant]
     Active Substance: ALCOHOL
     Dosage: THREE BEERS BEFORE DRIVING
     Dates: start: 20140902, end: 20140902
  3. XEROQUEL [Suspect]
     Active Substance: QUETIAPINE FUMARATE
     Indication: BIPOLAR DISORDER
     Route: 048
     Dates: start: 2012
  4. SERESTA [Concomitant]
     Active Substance: OXAZEPAM
     Dosage: DOSE REDUCED
     Route: 048
  5. SERESTA [Concomitant]
     Active Substance: OXAZEPAM
     Route: 048

REACTIONS (4)
  - Haematoma [Unknown]
  - Road traffic accident [Not Recovered/Not Resolved]
  - Alcohol problem [Unknown]
  - Somnolence [Recovering/Resolving]

NARRATIVE: CASE EVENT DATE: 2012
